FAERS Safety Report 6555608-4 (Version None)
Quarter: 2010Q1

REPORT INFORMATION
  Report Type: 
  Country: None (occurrence: None)
  Receive Date: 20100128
  Receipt Date: 20100119
  Transmission Date: 20100710
  Serious: Yes (Hospitalization)
  Sender: FDA-Public Use
  Company Number: JP-BRISTOL-MYERS SQUIBB COMPANY-14678114

PATIENT
  Age: 77 Year
  Sex: Male
  Weight: 66 kg

DRUGS (5)
  1. ERBITUX [Suspect]
     Indication: COLON CANCER
     Dosage: 400MG/M2 ON 09FEB09;16FEB09:250 MG/M2-5TH (RECENT INF):11MAY09(83 DAYS)
     Route: 042
     Dates: start: 20090209, end: 20090511
  2. IRINOTECAN HCL [Suspect]
     Indication: COLON CANCER
     Dosage: 120MG:23FEB09-23FEB09 100MG:23MAR09 4TH (RECENT INF):11MAY09
     Route: 042
     Dates: start: 20090209
  3. DIPHENHYDRAMINE HCL [Concomitant]
     Indication: PREMEDICATION
     Dosage: TABLET
     Route: 048
     Dates: start: 20090209, end: 20090511
  4. DEXAMETHASONE SODIUM PHOSPHATE [Concomitant]
     Indication: PREMEDICATION
     Route: 042
     Dates: start: 20090209, end: 20090511
  5. KYTRIL [Concomitant]
     Indication: ANTIEMETIC SUPPORTIVE CARE
     Route: 042
     Dates: start: 20090209, end: 20090511

REACTIONS (3)
  - DECREASED APPETITE [None]
  - DIARRHOEA [None]
  - MALAISE [None]
